FAERS Safety Report 6728159-1 (Version None)
Quarter: 2010Q2

REPORT INFORMATION
  Report Type: 
  Country: None (occurrence: None)
  Receive Date: 20100517
  Receipt Date: 20100507
  Transmission Date: 20101027
  Serious: Yes (Other)
  Sender: FDA-Public Use
  Company Number: A0858695A

PATIENT
  Age: 41 Year
  Sex: Female

DRUGS (4)
  1. ADVAIR DISKUS 100/50 [Suspect]
     Indication: ASTHMA
     Dosage: 1PUFF TWICE PER DAY
     Route: 055
  2. SINGULAIR [Concomitant]
  3. KLONOPIN [Concomitant]
  4. TOPAMAX [Concomitant]

REACTIONS (5)
  - CHEST PAIN [None]
  - COUGH [None]
  - MYOCARDIAL INFARCTION [None]
  - OSTEITIS [None]
  - PRODUCT QUALITY ISSUE [None]
